FAERS Safety Report 21438444 (Version 1)
Quarter: 2022Q4

REPORT INFORMATION
  Report Type: Spontaneous
  Country: GB (occurrence: GB)
  Receive Date: 20221011
  Receipt Date: 20221011
  Transmission Date: 20230113
  Serious: No
  Sender: FDA-Public Use
  Company Number: None

PATIENT

DRUGS (6)
  1. TIMOLOL [Suspect]
     Active Substance: TIMOLOL
     Dosage: PUT ONE DROP INTO THE LEFT EYE ONCE DAILY
     Dates: start: 20211104
  2. TAFLUPROST [Suspect]
     Active Substance: TAFLUPROST
     Dosage: ONE DROP ONCE DAILY
     Dates: start: 20220822
  3. ACETAZOLAMIDE [Concomitant]
     Active Substance: ACETAZOLAMIDE
     Dosage: TAKE HALF A TABLET FOUR TIMES A DAY
     Dates: start: 20211104
  4. BRINZOLAMIDE [Concomitant]
     Active Substance: BRINZOLAMIDE
     Dosage: ONE DROP TWICE DAILY TO LEFT EYE
     Dates: start: 20211104, end: 20220822
  5. HYALURONATE SODIUM [Concomitant]
     Active Substance: HYALURONATE SODIUM
     Dosage: USE FOUR TIMES A DAY AS DIRECTED
     Dates: start: 20220505
  6. PREDNISOLONE ACETATE [Concomitant]
     Active Substance: PREDNISOLONE ACETATE
     Dosage: ONE DROP TO THE LEFT EYE FOUR TIMES A DAY
     Dates: start: 20211220

REACTIONS (1)
  - Hypersensitivity [Unknown]
